FAERS Safety Report 23844612 (Version 1)
Quarter: 2024Q2

REPORT INFORMATION
  Report Type: Spontaneous
  Country: US (occurrence: US)
  Receive Date: 20240511
  Receipt Date: 20240511
  Transmission Date: 20240716
  Serious: No
  Sender: FDA-Public Use
  Company Number: US-TEVA-VS-3181927

PATIENT
  Age: 73 Year
  Sex: Female
  Weight: 52.16 kg

DRUGS (1)
  1. QVAR REDIHALER [Suspect]
     Active Substance: BECLOMETHASONE DIPROPIONATE
     Indication: Cough variant asthma
     Dosage: 2 INHALATIONS TWICE DAILY
     Route: 055

REACTIONS (2)
  - Incorrect dose administered by device [Unknown]
  - Asthma [Unknown]
